FAERS Safety Report 7473057-1 (Version None)
Quarter: 2011Q2

REPORT INFORMATION
  Report Type: 
  Country: None (occurrence: None)
  Receive Date: 20110511
  Receipt Date: 20110429
  Transmission Date: 20111010
  Serious: Yes (Other)
  Sender: FDA-Public Use
  Company Number: CA-ELI_LILLY_AND_COMPANY-CA201104008066

PATIENT
  Sex: Female
  Weight: 93.5 kg

DRUGS (19)
  1. ZYPREXA ZYDIS [Suspect]
     Dosage: 2.5 MG, UNK
  2. LAMICTAL [Concomitant]
  3. ZYPREXA [Suspect]
     Dosage: 20 MG, UNK
  4. CLONAZEPAM [Concomitant]
  5. ZYPREXA [Suspect]
     Dosage: 10 MG, EACH EVENING
     Dates: start: 20000509
  6. ZYPREXA [Suspect]
     Dosage: 17.5 MG, UNK
  7. ZYPREXA ZYDIS [Suspect]
     Indication: BIPOLAR DISORDER
     Dosage: 15 MG, UNK
  8. AXID [Concomitant]
  9. ATIVAN [Concomitant]
  10. NEURONTIN [Concomitant]
  11. QUINIDINE GLUCONATE [Concomitant]
  12. ZYPREXA [Suspect]
     Dosage: 15 MG, UNK
  13. TOPAMAX [Concomitant]
  14. CITALOPRAM HYDROBROMIDE [Concomitant]
  15. WELLBUTRIN SR [Concomitant]
  16. TEMAZ [Concomitant]
  17. SEROQUEL [Concomitant]
  18. ZYPREXA [Suspect]
     Indication: BIPOLAR DISORDER
     Dosage: 2.5 MG, EACH EVENING
     Dates: start: 20000509
  19. LITHIUM [Concomitant]

REACTIONS (7)
  - MYOCARDIAL INFARCTION [None]
  - TYPE 2 DIABETES MELLITUS [None]
  - ASPARTATE AMINOTRANSFERASE INCREASED [None]
  - VISION BLURRED [None]
  - WEIGHT INCREASED [None]
  - ALANINE AMINOTRANSFERASE INCREASED [None]
  - DYSLIPIDAEMIA [None]
